FAERS Safety Report 8064566-5 (Version None)
Quarter: 2012Q1

REPORT INFORMATION
  Report Type: 
  Country: None (occurrence: None)
  Receive Date: 20120123
  Receipt Date: 20120116
  Transmission Date: 20120608
  Serious: Yes (Other)
  Sender: FDA-Public Use
  Company Number: US-ABBOTT-12P-163-0894555-00

PATIENT
  Sex: Female
  Weight: 108.96 kg

DRUGS (2)
  1. HYDROCHLOROTHIAZIDE [Concomitant]
     Indication: BLOOD PRESSURE
  2. LUPRON DEPOT [Suspect]
     Indication: DYSMENORRHOEA
     Dates: start: 20111101

REACTIONS (9)
  - VISION BLURRED [None]
  - ARTHROPOD BITE [None]
  - OCULAR HYPERAEMIA [None]
  - HERPES ZOSTER [None]
  - ERYTHEMA [None]
  - DYSMENORRHOEA [None]
  - NEURALGIA [None]
  - PYREXIA [None]
  - FACIAL PAIN [None]
